FAERS Safety Report 8333856-0 (Version None)
Quarter: 2012Q2

REPORT INFORMATION
  Report Type: 
  Country: None (occurrence: None)
  Receive Date: 20120503
  Receipt Date: 20120501
  Transmission Date: 20120825
  Serious: Yes (Other)
  Sender: FDA-Public Use
  Company Number: US-PFIZER INC-2012045824

PATIENT
  Sex: Female
  Weight: 60 kg

DRUGS (8)
  1. NORGESTREL [Suspect]
     Indication: CONTRACEPTION
     Dosage: UNK
  2. NORGESTREL AND ETHINYL ESTRADIOL [Suspect]
     Indication: CONTRACEPTION
     Dosage: T Q DAY
     Route: 048
     Dates: start: 20091201, end: 20120202
  3. LO/OVRAL-28 [Suspect]
     Indication: CONTRACEPTION
     Dosage: 1 EVERYDAY
     Route: 048
     Dates: start: 20091201, end: 20120202
  4. RELPAX [Concomitant]
     Indication: MIGRAINE
     Dosage: ONCE, PRN
  5. NORGESTREL AND ETHINYL ESTRADIOL [Suspect]
     Indication: DYSMENORRHOEA
  6. DEXTROMETHORPHAN HYDROBROMIDE [Concomitant]
     Indication: NASOPHARYNGITIS
     Dosage: 1-2 DOSES, PRN
  7. LO/OVRAL-28 [Suspect]
     Indication: DYSMENORRHOEA
  8. OMEPRAZOLE [Concomitant]
     Indication: GASTRITIS
     Dosage: 2-3 DOSES, PRN

REACTIONS (3)
  - UNINTENDED PREGNANCY [None]
  - PRODUCT QUALITY ISSUE [None]
  - DRUG INEFFECTIVE [None]
